FAERS Safety Report 9390906 (Version 1)
Quarter: 2013Q3

REPORT INFORMATION
  Report Type: Spontaneous
  Country: US (occurrence: US)
  Receive Date: 20130709
  Receipt Date: 20130709
  Transmission Date: 20140515
  Serious: No
  Sender: FDA-Public Use
  Company Number: US-PFIZER INC-2013200227

PATIENT
  Age: 55 Year
  Sex: Female
  Weight: 65.76 kg

DRUGS (4)
  1. EFFEXOR [Suspect]
     Indication: DEPRESSION
     Dosage: 300 MG, DAILY
     Route: 048
  2. EFFEXOR [Suspect]
     Dosage: TWO CAPSULES OF 150 MG, DAILY
     Route: 048
     Dates: start: 2007
  3. TRAZODONE [Concomitant]
     Indication: DEPRESSION
     Dosage: 100 MG, DAILY
  4. HYDROCODONE [Concomitant]
     Indication: BACK PAIN
     Dosage: 20 MG, DAILY

REACTIONS (1)
  - Intervertebral disc disorder [Not Recovered/Not Resolved]
